FAERS Safety Report 15149108 (Version 2)
Quarter: 2018Q4

REPORT INFORMATION
  Report Type: Report from Study
  Country: IE (occurrence: IE)
  Receive Date: 20180716
  Receipt Date: 20181011
  Transmission Date: 20190204
  Serious: Yes (Other)
  Sender: FDA-Public Use
  Company Number: PHHY2017IE161710

PATIENT
  Sex: Male

DRUGS (2)
  1. AMLODIPINE [Concomitant]
     Active Substance: AMLODIPINE BESYLATE
     Indication: PRODUCT USED FOR UNKNOWN INDICATION
     Dosage: 10 MG, QD
     Route: 048
  2. VOTRIENT [Suspect]
     Active Substance: PAZOPANIB HYDROCHLORIDE
     Indication: RENAL CANCER
     Dosage: 600 MG, QD
     Route: 048
     Dates: start: 20170206

REACTIONS (8)
  - Basophil count decreased [Recovered/Resolved]
  - Red blood cell count decreased [Unknown]
  - Blood creatinine increased [Recovered/Resolved]
  - Gamma-glutamyltransferase increased [Recovering/Resolving]
  - Mean cell haemoglobin concentration decreased [Unknown]
  - Haemoglobin decreased [Unknown]
  - Mean cell volume increased [Not Recovered/Not Resolved]
  - Red cell distribution width increased [Recovered/Resolved]

NARRATIVE: CASE EVENT DATE: 20170606
